FAERS Safety Report 9466401 (Version 2)
Quarter: 2013Q4

REPORT INFORMATION
  Report Type: Spontaneous
  Country: CA (occurrence: CA)
  Receive Date: 20130820
  Receipt Date: 20131119
  Transmission Date: 20140711
  Serious: Yes (Hospitalization)
  Sender: FDA-Public Use
  Company Number: CA-B.I. PHARMACEUTICALS,INC./RIDGEFIELD-2013-BI-24726BP

PATIENT
  Age: 56 Year
  Sex: Male

DRUGS (1)
  1. MIRAPEX [Suspect]
     Indication: PARKINSON^S DISEASE
     Dates: start: 1998

REACTIONS (12)
  - Overdose [Unknown]
  - Paranoia [Recovered/Resolved]
  - Hallucination [Recovered/Resolved]
  - Acute psychosis [Unknown]
  - Pathological gambling [Not Recovered/Not Resolved]
  - Sudden onset of sleep [Unknown]
  - Hyperphagia [Unknown]
  - Obsessive-compulsive disorder [Unknown]
  - Compulsive shopping [Unknown]
  - Joint swelling [Unknown]
  - Compulsions [Unknown]
  - Stereotypy [Unknown]
